FAERS Safety Report 4641358-8 (Version None)
Quarter: 2005Q2

REPORT INFORMATION
  Report Type: 
  Country: None (occurrence: None)
  Receive Date: 20050419
  Receipt Date: 20050329
  Transmission Date: 20051028
  Serious: Yes (Death, Hospitalization)
  Sender: FDA-Public Use
  Company Number: B0109097A

PATIENT
  Sex: Male

DRUGS (1)
  1. RETROVIR [Suspect]
     Indication: ACQUIRED IMMUNODEFICIENCY SYNDROME
     Dates: start: 19970101, end: 19970101

REACTIONS (10)
  - ANAEMIA [None]
  - DIARRHOEA [None]
  - DRUG TOXICITY [None]
  - FATIGUE [None]
  - HEADACHE [None]
  - MUSCLE SPASMS [None]
  - MUSCULAR WEAKNESS [None]
  - MYOPATHY [None]
  - VOMITING [None]
  - WEIGHT DECREASED [None]
